FAERS Safety Report 9982615 (Version 1)
Quarter: 2014Q1

REPORT INFORMATION
  Report Type: Report from Study
  Country: US (occurrence: US)
  Receive Date: 20140307
  Receipt Date: 20140307
  Transmission Date: 20141002
  Serious: No
  Sender: FDA-Public Use
  Company Number: US-ABBVIE-13P-163-1175849-00

PATIENT
  Age: 55 Year
  Sex: Female
  Weight: 86.26 kg

DRUGS (17)
  1. HUMIRA [Suspect]
     Indication: PSORIASIS
     Dates: start: 201310, end: 201310
  2. HUMIRA [Suspect]
     Indication: RHEUMATOID ARTHRITIS
     Dosage: ONE WEEK AFTER 80 MG DOSE
     Dates: start: 2013
  3. METHOTREXATE [Concomitant]
     Indication: RHEUMATOID ARTHRITIS
     Dosage: 8 PILLS
  4. PRISTIQ [Concomitant]
     Indication: DEPRESSION
  5. PRILOSEC [Concomitant]
     Indication: DYSPEPSIA
  6. TRIAMTERENE [Concomitant]
     Indication: FLUID RETENTION
  7. PREMARIN [Concomitant]
     Indication: HORMONE REPLACEMENT THERAPY
  8. XANAX [Concomitant]
     Indication: ANXIETY
  9. MELOXICAM [Concomitant]
     Indication: RHEUMATOID ARTHRITIS
  10. MELOXICAM [Concomitant]
     Indication: RESTLESS LEGS SYNDROME
  11. FOLIC ACID [Concomitant]
     Indication: VITAMIN SUPPLEMENTATION
  12. SEROQUEL [Concomitant]
     Indication: INSOMNIA
  13. TEMAZEPAM [Concomitant]
     Indication: ANXIETY
  14. TEMAZEPAM [Concomitant]
     Indication: INSOMNIA
  15. HYDROCODONE [Concomitant]
     Indication: FIBROMYALGIA
  16. CARAFATE [Concomitant]
     Indication: GASTROOESOPHAGEAL REFLUX DISEASE
  17. VENTOLIN [Concomitant]
     Indication: ASTHMA

REACTIONS (6)
  - Fatigue [Not Recovered/Not Resolved]
  - Local swelling [Not Recovered/Not Resolved]
  - Neuropathy peripheral [Not Recovered/Not Resolved]
  - Pain in extremity [Not Recovered/Not Resolved]
  - Local swelling [Recovered/Resolved]
  - Pain in extremity [Recovered/Resolved]
